FAERS Safety Report 7643165-0 (Version None)
Quarter: 2011Q3

REPORT INFORMATION
  Report Type: 
  Country: None (occurrence: None)
  Receive Date: 20110729
  Receipt Date: 20110721
  Transmission Date: 20111222
  Serious: Yes (Hospitalization)
  Sender: FDA-Public Use
  Company Number: US-BIOGENIDEC-2011BI014134

PATIENT
  Sex: Female

DRUGS (2)
  1. AVONEX [Suspect]
     Indication: MULTIPLE SCLEROSIS
     Route: 030
     Dates: start: 20110321
  2. AVONEX [Suspect]
     Route: 030
     Dates: start: 19990101, end: 20101119

REACTIONS (4)
  - KNEE OPERATION [None]
  - MULTIPLE SCLEROSIS [None]
  - INTERVERTEBRAL DISC DISORDER [None]
  - BRAIN OPERATION [None]
